FAERS Safety Report 9571898 (Version 1)
Quarter: 2013Q4

REPORT INFORMATION
  Report Type: Spontaneous
  Country: US (occurrence: US)
  Receive Date: 20131001
  Receipt Date: 20131001
  Transmission Date: 20140711
  Serious: No
  Sender: FDA-Public Use
  Company Number: US-ABBVIE-12P-163-0999563-00

PATIENT
  Sex: Male
  Weight: 82.63 kg

DRUGS (1)
  1. KALETRA TABLETS 200/50 [Suspect]
     Indication: HIV INFECTION
     Dosage: 200/50 TWO TAB IN THE MORNING, TWO TAB IN THE EVENING
     Dates: start: 2002

REACTIONS (1)
  - Blood cholesterol increased [Not Recovered/Not Resolved]
